FAERS Safety Report 7970070-2 (Version None)
Quarter: 2011Q4

REPORT INFORMATION
  Report Type: 
  Country: None (occurrence: None)
  Receive Date: 20111212
  Receipt Date: 20111206
  Transmission Date: 20120403
  Serious: Yes (Life-Threatening, Other)
  Sender: FDA-Public Use
  Company Number: JP-SANOFI-AVENTIS-2011SA076568

PATIENT
  Age: 52 Year
  Sex: Male
  Weight: 62 kg

DRUGS (4)
  1. PLAVIX [Suspect]
     Indication: TRANSIENT ISCHAEMIC ATTACK
     Route: 048
     Dates: start: 20111008, end: 20111011
  2. PLAVIX [Suspect]
     Route: 048
     Dates: start: 20111026, end: 20111026
  3. TEMISARTAN [Suspect]
     Indication: HYPERTENSION
     Route: 048
     Dates: start: 20111008, end: 20111011
  4. TEMISARTAN [Suspect]
     Route: 048
     Dates: start: 20111026, end: 20111026

REACTIONS (5)
  - RENAL FAILURE [None]
  - VOMITING [None]
  - SHOCK [None]
  - DEHYDRATION [None]
  - DIARRHOEA [None]
